FAERS Safety Report 7506497-2 (Version None)
Quarter: 2011Q2

REPORT INFORMATION
  Report Type: 
  Country: None (occurrence: None)
  Receive Date: 20110526
  Receipt Date: 20110112
  Transmission Date: 20111010
  Serious: Yes (Hospitalization)
  Sender: FDA-Public Use
  Company Number: US-BAYER-201041677NA

PATIENT
  Age: 29 Year
  Sex: Female
  Weight: 74.376 kg

DRUGS (2)
  1. MIRENA [Suspect]
     Indication: CONTRACEPTION
     Dosage: FREQUENCY: CONTINUOUS. MIRENAS HAS BEEN INSERTED IN JUL OR AUG-2004.
     Route: 015
     Dates: start: 20040801, end: 20080101
  2. MIRENA [Suspect]
     Indication: MENORRHAGIA
     Dosage: FREQUENCY: CONTINUOUS
     Route: 015
     Dates: start: 20080201, end: 20101108

REACTIONS (6)
  - RUPTURED ECTOPIC PREGNANCY [None]
  - ABDOMINAL PAIN LOWER [None]
  - NAUSEA [None]
  - BREAST TENDERNESS [None]
  - METRORRHAGIA [None]
  - DISCOMFORT [None]
